FAERS Safety Report 11308604 (Version 5)
Quarter: 2016Q2

REPORT INFORMATION
  Report Type: Report from Study
  Country: CA (occurrence: CA)
  Receive Date: 20150724
  Receipt Date: 20160627
  Transmission Date: 20160815
  Serious: Yes (Hospitalization, Other)
  Sender: FDA-Public Use
  Company Number: PHHY2015CA083858

PATIENT
  Age: 72 Year
  Sex: Male

DRUGS (3)
  1. SANDOSTATIN [Suspect]
     Active Substance: OCTREOTIDE ACETATE
     Indication: ANGIODYSPLASIA
     Dosage: TID
     Route: 058
     Dates: start: 2015
  2. SANDOSTATIN LAR DEPOT [Suspect]
     Active Substance: OCTREOTIDE ACETATE
     Indication: ANGIODYSPLASIA
     Dosage: 20 MG, QMO
     Route: 030
     Dates: start: 20150609
  3. BISOPROLOL [Concomitant]
     Active Substance: BISOPROLOL
     Indication: PRODUCT USED FOR UNKNOWN INDICATION
     Dosage: 5 MG, QD
     Route: 065

REACTIONS (10)
  - Haemoglobin decreased [Unknown]
  - Weight decreased [Unknown]
  - Pulmonary mass [Unknown]
  - Peripheral swelling [Unknown]
  - Loss of consciousness [Unknown]
  - Blood pressure systolic decreased [Unknown]
  - Cerebrovascular accident [Unknown]
  - Dizziness [Unknown]
  - Injection site pain [Unknown]
  - Product use issue [Unknown]

NARRATIVE: CASE EVENT DATE: 201509
